FAERS Safety Report 6237364-2 (Version None)
Quarter: 2009Q2

REPORT INFORMATION
  Report Type: 
  Country: None (occurrence: None)
  Receive Date: 20090619
  Receipt Date: 20090617
  Transmission Date: 20091009
  Serious: Yes (Death, Hospitalization, Other)
  Sender: FDA-Public Use
  Company Number: PHEH2008US00458

PATIENT
  Sex: Female
  Weight: 73.469 kg

DRUGS (13)
  1. ZOMETA [Suspect]
     Dosage: 4 MG, QMO
     Route: 042
  2. AREDIA [Suspect]
     Indication: METASTASES TO BONE
     Dosage: UNK
     Dates: end: 20020101
  3. CHEMOTHERAPEUTICS NOS [Concomitant]
  4. TAXOL [Concomitant]
     Dosage: UNK
     Dates: start: 20051129
  5. PROCRIT                            /00909301/ [Concomitant]
     Dosage: 1 ML, QW
  6. RADIATION THERAPY [Concomitant]
  7. PLATELETS [Concomitant]
  8. PACLITAXEL [Concomitant]
  9. DEXAMETHASONE [Concomitant]
  10. GRANISETRON HCL [Concomitant]
  11. RANITIDINE [Concomitant]
  12. DIPHENHYDRAMINE HCL [Concomitant]
  13. EPOGEN [Concomitant]

REACTIONS (56)
  - ANAEMIA [None]
  - ANHEDONIA [None]
  - ANOREXIA [None]
  - ANXIETY [None]
  - ARTHRALGIA [None]
  - ASTHENIA [None]
  - BACK PAIN [None]
  - BONE DISORDER [None]
  - CATHETER PLACEMENT [None]
  - CONSTIPATION [None]
  - CYSTOSCOPY [None]
  - DEATH [None]
  - DECREASED APPETITE [None]
  - DEPRESSION [None]
  - DYSPNOEA EXERTIONAL [None]
  - EAR PAIN [None]
  - FALL [None]
  - GAIT DISTURBANCE [None]
  - HEPATOMEGALY [None]
  - HOT FLUSH [None]
  - HYDRONEPHROSIS [None]
  - HYPOACUSIS [None]
  - HYPOAESTHESIA [None]
  - INJURY [None]
  - JAW DISORDER [None]
  - LEUKOPENIA [None]
  - LYMPHADENOPATHY [None]
  - MASS [None]
  - MASS EXCISION [None]
  - MENOPAUSE [None]
  - METASTASES TO BONE [None]
  - METASTASES TO BONE MARROW [None]
  - METASTASES TO MENINGES [None]
  - METASTASES TO SPINE [None]
  - METASTASIS [None]
  - NAUSEA [None]
  - NEUTROPENIA [None]
  - OSTEONECROSIS [None]
  - PAIN [None]
  - PANCYTOPENIA [None]
  - PARAESTHESIA [None]
  - PELVIC MASS [None]
  - PELVIC PAIN [None]
  - PLEURAL EFFUSION [None]
  - RENAL FAILURE ACUTE [None]
  - SINUSITIS [None]
  - STENT PLACEMENT [None]
  - SUBCUTANEOUS NODULE [None]
  - SWELLING [None]
  - TEMPOROMANDIBULAR JOINT SYNDROME [None]
  - THROMBOCYTOPENIA [None]
  - TREMOR [None]
  - TRISMUS [None]
  - UROGRAM [None]
  - VERTIGO [None]
  - WEIGHT DECREASED [None]
